FAERS Safety Report 4929661-5 (Version None)
Quarter: 2006Q1

REPORT INFORMATION
  Report Type: 
  Country: None (occurrence: None)
  Receive Date: 20060223
  Receipt Date: 20060214
  Transmission Date: 20060701
  Serious: Yes (Life-Threatening, Hospitalization)
  Sender: FDA-Public Use
  Company Number: HQWYE823916FEB06

PATIENT
  Age: 61 Year
  Sex: Female

DRUGS (10)
  1. MYLOTARG [Suspect]
     Indication: MYELODYSPLASTIC SYNDROME
     Dates: start: 20060116, end: 20060116
  2. CYTARABINE [Suspect]
     Indication: MYELODYSPLASTIC SYNDROME
     Dates: start: 20060111, end: 20060115
  3. TOPOTECAN (TOPOTECAN, ) [Suspect]
     Indication: MYELODYSPLASTIC SYNDROME
     Dates: start: 20060111, end: 20060115
  4. ACYCLOVIR [Concomitant]
  5. LEXAPRO [Concomitant]
  6. TAMOXIFEN CITRATE [Concomitant]
  7. NORVASC [Concomitant]
  8. PROTONIX [Concomitant]
  9. CEFEPIME (CEFEPIME) [Concomitant]
  10. LEUKINE [Concomitant]

REACTIONS (5)
  - BILIRUBIN CONJUGATED INCREASED [None]
  - DIALYSIS [None]
  - LIVER FUNCTION TEST ABNORMAL [None]
  - RENAL FAILURE ACUTE [None]
  - TRANSAMINASES INCREASED [None]
